FAERS Safety Report 6756047-3 (Version None)
Quarter: 2010Q2

REPORT INFORMATION
  Report Type: 
  Country: None (occurrence: None)
  Receive Date: 20100524
  Receipt Date: 20100414
  Transmission Date: 20101027
  Serious: Yes (Hospitalization)
  Sender: FDA-Public Use
  Company Number: 008487

PATIENT
  Sex: Female

DRUGS (3)
  1. CIMZIA [Suspect]
     Indication: CROHN'S DISEASE
     Dosage: 200 MG 1X/2 WEEKS, SUBCUTANEOUS
     Route: 058
     Dates: start: 20080903
  2. LOVENOX [Suspect]
     Indication: DEEP VEIN THROMBOSIS
  3. COUMADIN [Suspect]
     Indication: DEEP VEIN THROMBOSIS

REACTIONS (4)
  - ABDOMINAL PAIN [None]
  - DEEP VEIN THROMBOSIS [None]
  - INJECTION SITE ABSCESS [None]
  - RASH [None]
